FAERS Safety Report 25148403 (Version 1)
Quarter: 2025Q2

REPORT INFORMATION
  Report Type: Spontaneous
  Country: FR (occurrence: FR)
  Receive Date: 20250402
  Receipt Date: 20250402
  Transmission Date: 20250717
  Serious: Yes (Other)
  Sender: DEXCEL
  Company Number: None

PATIENT
  Age: 4 Year
  Sex: Female
  Weight: 14 kg

DRUGS (9)
  1. ALCOHOL\CHLORHEXIDINE GLUCONATE [Suspect]
     Active Substance: ALCOHOL\CHLORHEXIDINE GLUCONATE
     Indication: Antibiotic prophylaxis
     Route: 003
     Dates: start: 20250227, end: 20250227
  2. CEFAZOLIN SODIUM [Concomitant]
     Active Substance: CEFAZOLIN SODIUM
     Indication: Antibiotic prophylaxis
     Route: 003
     Dates: start: 20250227, end: 20250227
  3. DEFERASIROX [Concomitant]
     Active Substance: DEFERASIROX
     Indication: Iron overload
     Route: 048
     Dates: start: 20221115, end: 20230509
  4. DEFERASIROX [Concomitant]
     Active Substance: DEFERASIROX
     Indication: Iron overload
     Route: 048
     Dates: start: 20230509, end: 20231130
  5. DEFERASIROX [Concomitant]
     Active Substance: DEFERASIROX
     Indication: Iron overload
     Route: 048
     Dates: start: 20231130, end: 20240528
  6. DEFERASIROX [Concomitant]
     Active Substance: DEFERASIROX
     Indication: Iron overload
     Route: 048
     Dates: start: 20240528
  7. FOLIC ACID [Concomitant]
     Active Substance: FOLIC ACID
     Indication: Vitamin supplementation
     Route: 048
     Dates: start: 202103
  8. LEVETIRACETAM ARROW 100 mg/ml, oral solution [Concomitant]
     Indication: Febrile convulsion
     Dosage: 150MG 1-0-1
     Route: 048
  9. SOLACY PEDIATRIC, tablet for oral suspension [Concomitant]
     Indication: Nasopharyngitis
     Route: 048

REACTIONS (1)
  - Dermatitis allergic [Recovering/Resolving]

NARRATIVE: CASE EVENT DATE: 20250228
